FAERS Safety Report 7221614-X (Version None)
Quarter: 2011Q1

REPORT INFORMATION
  Report Type: 
  Country: None (occurrence: None)
  Receive Date: 20110112
  Receipt Date: 20110107
  Transmission Date: 20110831
  Serious: Yes (Other)
  Sender: FDA-Public Use
  Company Number: US-ROCHE-740788

PATIENT
  Sex: Male

DRUGS (3)
  1. COPEGUS [Suspect]
     Indication: HEPATITIS C
     Dosage: FORM: PILLS, SKIPPED PILLS FOR 4 DAYS
     Route: 048
     Dates: start: 20100917
  2. PEGASYS [Suspect]
     Indication: HEPATITIS C
     Dosage: FORM: PRE-FILLED SYRINGE
     Route: 058
     Dates: start: 20100917
  3. COPEGUS [Suspect]
     Dosage: DIVIDED DOSES
     Route: 048
     Dates: start: 20101226, end: 20110106

REACTIONS (12)
  - NERVOUSNESS [None]
  - TREMOR [None]
  - IRRITABILITY [None]
  - PAIN [None]
  - DIZZINESS [None]
  - HEPATOMEGALY [None]
  - WEIGHT DECREASED [None]
  - ASTHENIA [None]
  - EPISTAXIS [None]
  - ABDOMINAL PAIN UPPER [None]
  - PLATELET COUNT DECREASED [None]
  - BLOOD BILIRUBIN INCREASED [None]
